FAERS Safety Report 25610981 (Version 3)
Quarter: 2025Q4

REPORT INFORMATION
  Report Type: Spontaneous
  Country: US (occurrence: US)
  Receive Date: 20250728
  Receipt Date: 20251223
  Transmission Date: 20260119
  Serious: Yes (Death, Hospitalization, Other)
  Sender: INCYTE
  Company Number: US-INCYTE CORPORATION-2025IN008046

PATIENT
  Age: 66 Year

DRUGS (3)
  1. JAKAFI [Suspect]
     Active Substance: RUXOLITINIB
     Indication: Chronic myelomonocytic leukaemia (in remission)
     Dosage: 10 MILLIGRAM, BID
     Route: 061
  2. JAKAFI [Suspect]
     Active Substance: RUXOLITINIB
     Indication: Chronic myelomonocytic leukaemia
  3. ONUREG [Concomitant]
     Active Substance: AZACITIDINE
     Indication: Product used for unknown indication
     Dosage: UNK
     Route: 065

REACTIONS (3)
  - Death [Fatal]
  - Unresponsive to stimuli [Not Recovered/Not Resolved]
  - Off label use [Unknown]
